FAERS Safety Report 8640699 (Version 2)
Quarter: 2017Q3

REPORT INFORMATION
  Report Type: Spontaneous
  Country: US (occurrence: US)
  Receive Date: 20120628
  Receipt Date: 20170817
  Transmission Date: 20171128
  Serious: Yes (Hospitalization, Other)
  Sender: FDA-Public Use
  Company Number: US-JNJFOC-20120612882

PATIENT

DRUGS (3)
  1. VORINOSTAT [Suspect]
     Active Substance: VORINOSTAT
     Indication: PLASMA CELL MYELOMA
     Dosage: ESCALATING DOSE ON DAYS 4-11 OR 1-14 OF A 3-WEEK CYCLE
     Route: 065
  2. DOXORUBICIN [Suspect]
     Active Substance: DOXORUBICIN
     Indication: PLASMA CELL MYELOMA
     Dosage: ON DAY 4
     Route: 042
  3. BORTEZOMIB [Suspect]
     Active Substance: BORTEZOMIB
     Indication: PLASMA CELL MYELOMA
     Dosage: ON DAYS 1, 4, 8 AND 11
     Route: 065

REACTIONS (30)
  - Infection [Unknown]
  - Hypermagnesaemia [Unknown]
  - Skin disorder [Unknown]
  - Haemorrhage [Unknown]
  - Diarrhoea [Unknown]
  - Bacteraemia [Unknown]
  - Haematemesis [Unknown]
  - Aspartate aminotransferase increased [Unknown]
  - Stomatitis [Unknown]
  - Weight decreased [Unknown]
  - Neutropenia [Unknown]
  - Plasma cell myeloma [Unknown]
  - Atrial fibrillation [Unknown]
  - Fatigue [Unknown]
  - Dizziness [Unknown]
  - Pyrexia [Unknown]
  - Thrombocytopenia [Unknown]
  - Anaemia [Unknown]
  - Dehydration [Unknown]
  - Hypertension [Unknown]
  - Vomiting [Unknown]
  - Palmar-plantar erythrodysaesthesia syndrome [Unknown]
  - Hypokalaemia [Unknown]
  - Neuropathy peripheral [Unknown]
  - Nausea [Unknown]
  - Hypophosphataemia [Unknown]
  - Decreased appetite [Unknown]
  - Constipation [Unknown]
  - Lymphopenia [Unknown]
  - Syncope [Unknown]
